FAERS Safety Report 5283084-0 (Version None)
Quarter: 2007Q2

REPORT INFORMATION
  Report Type: 
  Country: None (occurrence: None)
  Receive Date: 20070402
  Receipt Date: 20070326
  Transmission Date: 20071010
  Serious: Yes (Other)
  Sender: FDA-Public Use
  Company Number: JP-AVENTIS-200710800JP

PATIENT
  Age: 72 Year

DRUGS (2)
  1. ALLEGRA [Suspect]
     Route: 048
  2. UNKNOWN DRUG [Concomitant]

REACTIONS (1)
  - PLEURAL EFFUSION [None]
